FAERS Safety Report 18837149 (Version 1)
Quarter: 2021Q1

REPORT INFORMATION
  Report Type: Spontaneous
  Country: US (occurrence: US)
  Receive Date: 20210203
  Receipt Date: 20210203
  Transmission Date: 20210419
  Serious: No
  Sender: FDA-Public Use
  Company Number: US-ELI_LILLY_AND_COMPANY-US202101013043

PATIENT
  Age: 72 Year
  Sex: Female

DRUGS (1)
  1. BAMLANIVIMAB 700MG [Suspect]
     Active Substance: BAMLANIVIMAB
     Indication: PRODUCT USED FOR UNKNOWN INDICATION
     Dosage: UNK, UNKNOWN
     Route: 065
     Dates: start: 20210128, end: 20210128

REACTIONS (2)
  - Nausea [Unknown]
  - Pyrexia [Unknown]

NARRATIVE: CASE EVENT DATE: 20210129
